FAERS Safety Report 26183904 (Version 1)
Quarter: 2025Q4

REPORT INFORMATION
  Report Type: Report from Study
  Country: EU (occurrence: EU)
  Receive Date: 20251222
  Receipt Date: 20251222
  Transmission Date: 20260118
  Serious: Yes (Death, Life-Threatening, Other)
  Sender: BAXTER
  Company Number: None

PATIENT
  Age: 33 Year
  Sex: Female
  Weight: 48 kg

DRUGS (16)
  1. CYCLOPHOSPHAMIDE [Suspect]
     Active Substance: CYCLOPHOSPHAMIDE
     Indication: Stem cell transplant
     Dosage: 2400 MG, QD
     Route: 042
     Dates: start: 20181203, end: 20181204
  2. LETERMOVIR [Suspect]
     Active Substance: LETERMOVIR
     Indication: Antiviral prophylaxis
     Dosage: 240 MG, TEMPORARY AUTHORIZATION FOR USE
     Route: 048
     Dates: start: 20181206, end: 20181213
  3. ACUPAN [Suspect]
     Active Substance: NEFOPAM HYDROCHLORIDE
     Indication: Stomatitis
     Dosage: 80 MG, QD (20 MILLIGRAM, QID )
     Route: 042
     Dates: start: 20181201, end: 20181212
  4. ALPRAZOLAM [Suspect]
     Active Substance: ALPRAZOLAM
     Indication: Anxiety
     Dosage: 0.25 MG (1 TOTAL) (MYLAN 0.25 MG, SCORED TABLET) ONCE
     Route: 048
     Dates: start: 20181211, end: 20181211
  5. ALPRAZOLAM [Suspect]
     Active Substance: ALPRAZOLAM
     Indication: Anxiety
     Dosage: 0.25 MG (1 TOTAL) (MYLAN 0.25 MG, SCORED TABLET)
     Route: 048
     Dates: start: 20181211, end: 20181211
  6. CANCIDAS [Suspect]
     Active Substance: CASPOFUNGIN ACETATE
     Indication: Antifungal prophylaxis
     Dosage: 50 MG, QD (50 MG, POWDER FOR SOLUTION FOR INFUSION)
     Route: 042
     Dates: start: 20181210, end: 20181213
  7. CELLCEPT [Suspect]
     Active Substance: MYCOPHENOLATE MOFETIL
     Indication: Prophylaxis against graft versus host disease
     Dosage: 2250 MG, QD (750 MILLIGRAM, TID)
     Route: 048
     Dates: start: 20181205, end: 20181212
  8. PRIMPERAN [Suspect]
     Active Substance: METOCLOPRAMIDE HYDROCHLORIDE
     Indication: Prophylaxis of nausea and vomiting
     Dosage: 30 MG, QD (CONCENTRATION: 10 MG/2 ML, INJECTABLE SOLUTION IN AMPOULE)
     Route: 042
     Dates: start: 20181123, end: 20181212
  9. CYCLOSPORINE [Suspect]
     Active Substance: CYCLOSPORINE
     Indication: Graft versus host disease
     Dosage: 150 MG, QD
     Route: 042
     Dates: start: 20181205, end: 20181209
  10. TRAMADOL HYDROCHLORIDE [Suspect]
     Active Substance: TRAMADOL HYDROCHLORIDE
     Indication: Stomatitis
     Dosage: 300 MG, QD (100 MG/2 ML, INJECTABLE SOLUTION IN AMPOULE)
     Route: 042
     Dates: start: 20181204, end: 20181212
  11. VFEND [Suspect]
     Active Substance: VORICONAZOLE
     Indication: Antifungal prophylaxis
     Dosage: 500 MG, QD (250 MILLIGRAM, BID )
     Route: 042
     Dates: start: 20181201, end: 20181209
  12. ZOVIRAX [Suspect]
     Active Substance: ACYCLOVIR
     Indication: Antiviral prophylaxis
     Dosage: 750 MG, QD (250 MILLIGRAM, TID)
     Route: 042
     Dates: start: 20181201, end: 20181210
  13. AMIKACIN [Suspect]
     Active Substance: AMIKACIN
     Indication: Pseudomonas infection
     Dosage: 1200 MG, QD
     Route: 042
     Dates: start: 20181206, end: 20181209
  14. CYCLOSPORINE [Suspect]
     Active Substance: CYCLOSPORINE
     Indication: Prophylaxis against graft versus host disease
     Dosage: 150 MG, QD
     Route: 042
     Dates: start: 20181205, end: 20181209
  15. PIPERACILLIN AND TAZOBACTAM [Suspect]
     Active Substance: PIPERACILLIN SODIUM\TAZOBACTAM SODIUM
     Indication: Sepsis
     Dosage: 3 DOSAGE FORM, QD (1 DOSAGE FORM, TID; CONCENTRATION: 4G/500 MG)
     Route: 042
     Dates: start: 20181201, end: 20181212
  16. PIPERACILLIN AND TAZOBACTAM [Suspect]
     Active Substance: PIPERACILLIN SODIUM\TAZOBACTAM SODIUM
     Indication: Febrile neutropenia
     Dosage: UNK
     Route: 065

REACTIONS (12)
  - Encephalopathy [Fatal]
  - Cytokine release syndrome [Fatal]
  - Coma [Fatal]
  - Enterocolitis [Not Recovered/Not Resolved]
  - Status epilepticus [Unknown]
  - Blood potassium abnormal [Unknown]
  - Aspartate aminotransferase abnormal [Unknown]
  - Alanine aminotransferase abnormal [Unknown]
  - Blood alkaline phosphatase abnormal [Unknown]
  - Blood bilirubin abnormal [Unknown]
  - Acute kidney injury [Not Recovered/Not Resolved]
  - Cardiac failure [Not Recovered/Not Resolved]

NARRATIVE: CASE EVENT DATE: 20181207
